FAERS Safety Report 19667101 (Version 1)
Quarter: 2021Q3

REPORT INFORMATION
  Report Type: Spontaneous
  Country: IN (occurrence: IN)
  Receive Date: 20210806
  Receipt Date: 20210806
  Transmission Date: 20211014
  Serious: Yes (Other)
  Sender: FDA-Public Use
  Company Number: IN-LUPIN LIMITED-2021-13652

PATIENT

DRUGS (1)
  1. TELISTA AM [Suspect]
     Active Substance: AMLODIPINE\TELMISARTAN
     Indication: BLOOD PRESSURE ABNORMAL
     Dosage: UNK UNK, BID
     Route: 048

REACTIONS (1)
  - Drug ineffective [Unknown]
